FAERS Safety Report 22529563 (Version 1)
Quarter: 2023Q2

REPORT INFORMATION
  Report Type: Report from Study
  Country: IT (occurrence: IT)
  Receive Date: 20230607
  Receipt Date: 20230607
  Transmission Date: 20230722
  Serious: Yes (Hospitalization, Other)
  Sender: FDA-Public Use
  Company Number: IT-ASTELLAS-2023US017209

PATIENT
  Age: 65 Year
  Sex: Male

DRUGS (2)
  1. GILTERITINIB [Suspect]
     Active Substance: GILTERITINIB
     Indication: Acute myeloid leukaemia
     Route: 065
  2. GILTERITINIB [Suspect]
     Active Substance: GILTERITINIB
     Route: 065

REACTIONS (6)
  - Gastrointestinal toxicity [Unknown]
  - Abdominal pain [Unknown]
  - Diarrhoea [Unknown]
  - Melaena [Unknown]
  - Haematotoxicity [Recovered/Resolved]
  - Pancytopenia [Recovered/Resolved]
